FAERS Safety Report 14246581 (Version 1)
Quarter: 2017Q4

REPORT INFORMATION
  Report Type: Spontaneous
  Country: FR (occurrence: FR)
  Receive Date: 20171204
  Receipt Date: 20171204
  Transmission Date: 20180321
  Serious: Yes (Hospitalization, Other)
  Sender: FDA-Public Use
  Company Number: FR-MERCK KGAA-2036564

PATIENT
  Sex: Female

DRUGS (1)
  1. NOVOTHYROX [Suspect]
     Active Substance: LEVOTHYROXINE SODIUM
     Indication: PRODUCT USED FOR UNKNOWN INDICATION

REACTIONS (15)
  - Cerebrovascular accident [None]
  - Diplopia [None]
  - Alopecia [None]
  - Hypotension [None]
  - Disturbance in attention [None]
  - Hot flush [None]
  - Weight decreased [None]
  - Muscle spasms [None]
  - Pain in extremity [None]
  - Nasopharyngitis [None]
  - Blood pressure increased [Not Recovered/Not Resolved]
  - Dizziness [Not Recovered/Not Resolved]
  - Syncope [Not Recovered/Not Resolved]
  - Feeling drunk [None]
  - Hyperthyroidism [None]

NARRATIVE: CASE EVENT DATE: 201705
